FAERS Safety Report 19435110 (Version 2)
Quarter: 2021Q2

REPORT INFORMATION
  Report Type: Spontaneous
  Country: PT (occurrence: PT)
  Receive Date: 20210617
  Receipt Date: 20210628
  Transmission Date: 20210717
  Serious: Yes (Hospitalization)
  Sender: FDA-Public Use
  Company Number: PT-CELLTRION INC.-2021PT007905

PATIENT

DRUGS (9)
  1. INFLIXIMAB (UNKNOWN) [Suspect]
     Active Substance: INFLIXIMAB
     Dosage: 10 MG/KG EVERY 6 WEEKS, MAINTENANCE THERAPY
     Route: 065
  2. MESALAZINE [Concomitant]
     Active Substance: MESALAMINE
     Dosage: 4.5 G, QD
     Route: 048
  3. ADALIMUMAB [Suspect]
     Active Substance: ADALIMUMAB
     Indication: PYODERMA GANGRENOSUM
     Dosage: UNKNOWN, 1 EVERY 1 WEEK
     Route: 065
  4. PREDNISOLONE. [Concomitant]
     Active Substance: PREDNISOLONE
     Indication: PYODERMA GANGRENOSUM
     Dosage: 60 MILLIGRAM
     Route: 048
  5. ADALIMUMAB [Suspect]
     Active Substance: ADALIMUMAB
     Dosage: 40 MG, EVERY 2 WEEKS (MAINTENANCE DOSE)
     Route: 065
  6. INFLIXIMAB (UNKNOWN) [Suspect]
     Active Substance: INFLIXIMAB
     Indication: PYODERMA GANGRENOSUM
     Dosage: INDUCTION DOSE AT WEEK 0,2 AND 6
     Route: 065
  7. ADALIMUMAB [Suspect]
     Active Substance: ADALIMUMAB
     Dosage: INDUCTION DOSE AT WEEK 0 AND 2
     Route: 065
  8. MESALAZINE [Concomitant]
     Active Substance: MESALAMINE
     Indication: COLITIS ULCERATIVE
     Dosage: 3 G, QD
     Route: 048
  9. MESALAZINE [Concomitant]
     Active Substance: MESALAMINE
     Dosage: UNKNOWN
     Route: 061

REACTIONS (3)
  - Drug ineffective for unapproved indication [Unknown]
  - Off label use [Unknown]
  - Pseudomonas infection [Recovering/Resolving]
